FAERS Safety Report 7297236-1 (Version None)
Quarter: 2011Q1

REPORT INFORMATION
  Report Type: 
  Country: None (occurrence: None)
  Receive Date: 20110216
  Receipt Date: 20110208
  Transmission Date: 20110831
  Serious: Yes (Other)
  Sender: FDA-Public Use
  Company Number: JP-B.I. PHARMACEUTICALS,INC./RIDGEFIELD-2011-BP-02407NB

PATIENT
  Age: 64 Year
  Sex: Female

DRUGS (7)
  1. MICARDIS [Suspect]
     Indication: HYPERTENSION
     Dosage: 40 MG
     Route: 048
     Dates: start: 20090801, end: 20110201
  2. LIPITOR [Suspect]
     Indication: HYPERLIPIDAEMIA
     Dosage: 10 MG
     Route: 048
  3. AMLODIPINE [Suspect]
     Dosage: 5 MG
     Route: 048
  4. OMERAP [Concomitant]
     Dosage: 10 MG
     Route: 048
  5. NEUROVITAN [Concomitant]
     Route: 048
  6. MYSLEE [Concomitant]
     Route: 048
  7. OMEPRAL [Concomitant]

REACTIONS (1)
  - INTERSTITIAL LUNG DISEASE [None]
